FAERS Safety Report 5624082-4 (Version None)
Quarter: 2008Q1

REPORT INFORMATION
  Report Type: 
  Country: None (occurrence: None)
  Receive Date: 20080213
  Receipt Date: 20070907
  Transmission Date: 20080703
  Serious: No
  Sender: FDA-Public Use
  Company Number: US-KINGPHARMUSA00001-K200701168

PATIENT

DRUGS (4)
  1. EPIPEN [Suspect]
     Dosage: UNK, UNK
     Dates: start: 20070901, end: 20070901
  2. FUROSEMIDE [Concomitant]
     Dosage: 40 MG, UNK
  3. LIPITOR [Concomitant]
     Dosage: 20 MG, UNK
  4. ISOSORBIDE DINITRATE [Concomitant]
     Dosage: UNK, UNK

REACTIONS (2)
  - ACCIDENTAL EXPOSURE [None]
  - NO ADVERSE EVENT [None]
